FAERS Safety Report 7939309-3 (Version None)
Quarter: 2011Q4

REPORT INFORMATION
  Report Type: 
  Country: None (occurrence: None)
  Receive Date: 20111125
  Receipt Date: 20111025
  Transmission Date: 20120403
  Serious: No
  Sender: FDA-Public Use
  Company Number: US-BAYER-2011-012391

PATIENT
  Age: 17 Year
  Sex: Female
  Weight: 56 kg

DRUGS (1)
  1. MIRENA [Suspect]
     Indication: CONTRACEPTION
     Dosage: 20 MCG/24HR, CONT
     Route: 015
     Dates: start: 20100722, end: 20101226

REACTIONS (4)
  - ABDOMINAL PAIN [None]
  - UNEVALUABLE EVENT [None]
  - GENITAL HAEMORRHAGE [None]
  - DEVICE EXPULSION [None]
